FAERS Safety Report 13993504 (Version 2)
Quarter: 2017Q4

REPORT INFORMATION
  Report Type: Spontaneous
  Country: JP (occurrence: JP)
  Receive Date: 20170920
  Receipt Date: 20171006
  Transmission Date: 20180321
  Serious: Yes (Hospitalization)
  Sender: FDA-Public Use
  Company Number: JP-ELI_LILLY_AND_COMPANY-JP201708008468

PATIENT

DRUGS (2)
  1. TRULICITY [Suspect]
     Active Substance: DULAGLUTIDE
     Indication: DIABETES MELLITUS
     Route: 058
  2. TENELIA [Concomitant]
     Active Substance: TENELIGLIPTIN

REACTIONS (3)
  - Ileus paralytic [Unknown]
  - Pyrexia [Unknown]
  - Decreased appetite [Unknown]
